FAERS Safety Report 8259265-0 (Version None)
Quarter: 2012Q1

REPORT INFORMATION
  Report Type: 
  Country: None (occurrence: None)
  Receive Date: 20120327
  Receipt Date: 20081022
  Transmission Date: 20120608
  Serious: Yes (Other)
  Sender: FDA-Public Use
  Company Number: PHEH2008US09521

PATIENT
  Sex: Male

DRUGS (1)
  1. GLEEVEC [Suspect]
     Dosage: , ORAL
     Route: 048
     Dates: start: 20020101

REACTIONS (1)
  - ERYTHROPOIESIS ABNORMAL [None]
